FAERS Safety Report 25464109 (Version 3)
Quarter: 2025Q3

REPORT INFORMATION
  Report Type: Report from Study
  Country: US (occurrence: US)
  Receive Date: 20250621
  Receipt Date: 20250811
  Transmission Date: 20251020
  Serious: No
  Sender: SANOFI AVENTIS
  Company Number: US-SA-2025SA175121

PATIENT
  Age: 76 Year
  Sex: Female

DRUGS (1)
  1. CERDELGA [Suspect]
     Active Substance: ELIGLUSTAT
     Indication: Gaucher^s disease
     Dosage: 84 MG, BID
     Route: 048
     Dates: start: 201609

REACTIONS (5)
  - Renal pain [Unknown]
  - Intervertebral disc degeneration [Unknown]
  - Neck pain [Unknown]
  - Arthralgia [Unknown]
  - Product dose omission in error [Unknown]

NARRATIVE: CASE EVENT DATE: 20250101
